FAERS Safety Report 8333750-5 (Version None)
Quarter: 2012Q2

REPORT INFORMATION
  Report Type: 
  Country: None (occurrence: None)
  Receive Date: 20120503
  Receipt Date: 20120419
  Transmission Date: 20120825
  Serious: Yes (Other)
  Sender: FDA-Public Use
  Company Number: DE-CELGENEUS-062-21660-12042364

PATIENT
  Age: 60 Year
  Sex: Female

DRUGS (2)
  1. ZOMETA [Concomitant]
     Indication: BREAST CANCER
     Route: 065
     Dates: start: 20110801, end: 20111201
  2. ABRAXANE [Suspect]
     Indication: BREAST CANCER METASTATIC
     Dosage: 100 MILLIGRAM/SQ. METER
     Route: 065
     Dates: start: 20110801, end: 20111201

REACTIONS (2)
  - BREAST CANCER METASTATIC [None]
  - DIZZINESS [None]
